FAERS Safety Report 15877017 (Version 1)
Quarter: 2019Q1

REPORT INFORMATION
  Report Type: Report from Study
  Country: DE (occurrence: DE)
  Receive Date: 20190128
  Receipt Date: 20190128
  Transmission Date: 20190417
  Serious: Yes (Hospitalization)
  Sender: FDA-Public Use
  Company Number: DE-ROCHE-2246211

PATIENT
  Age: 75 Year
  Sex: Male

DRUGS (4)
  1. BENDAMUSTINE [Suspect]
     Active Substance: BENDAMUSTINE
     Indication: CHRONIC LYMPHOCYTIC LEUKAEMIA
     Dosage: CYCLES 1-2 D1 + 2
     Route: 042
     Dates: start: 20160118, end: 20160119
  2. OBINUTUZUMAB. [Suspect]
     Active Substance: OBINUTUZUMAB
     Indication: CHRONIC LYMPHOCYTIC LEUKAEMIA
     Dosage: INDUCTION: CYCLE 1: D1: 100MG, D1(OR 2): 900MG, D8 + 15: 1000MG; CYCLE 2-6: D1: 1000MG MAINTENANCE:
     Route: 065
     Dates: start: 20160222, end: 20170309
  3. METOPROLOL. [Concomitant]
     Active Substance: METOPROLOL
     Route: 065
     Dates: start: 20180906, end: 20180907
  4. VENETOCLAX. [Suspect]
     Active Substance: VENETOCLAX
     Indication: CHRONIC LYMPHOCYTIC LEUKAEMIA
     Dosage: INDUCTION: CYCLE 2: D1-7: 20MG, D8-14: 50MG, D15-21: 100MG, D22-28: 200MG; CYCLE 3-6: D1-28: 400MG M
     Route: 065
     Dates: start: 20160512, end: 20170404

REACTIONS (1)
  - Syncope [Recovered/Resolved]

NARRATIVE: CASE EVENT DATE: 20180906
